FAERS Safety Report 12635078 (Version 3)
Quarter: 2016Q3

REPORT INFORMATION
  Report Type: Spontaneous
  Country: US (occurrence: US)
  Receive Date: 20160808
  Receipt Date: 20160915
  Transmission Date: 20161109
  Serious: Yes (Other)
  Sender: FDA-Public Use
  Company Number: US-009507513-1608USA003656

PATIENT
  Sex: Female
  Weight: 87.08 kg

DRUGS (1)
  1. NEXPLANON [Suspect]
     Active Substance: ETONOGESTREL
     Dosage: UNK
     Route: 059
     Dates: start: 20160519

REACTIONS (2)
  - Hypoaesthesia [Unknown]
  - Migration of implanted drug [Not Recovered/Not Resolved]

NARRATIVE: CASE EVENT DATE: 2016
